FAERS Safety Report 10209220 (Version 1)
Quarter: 2014Q2

REPORT INFORMATION
  Report Type: Spontaneous
  Country: US (occurrence: US)
  Receive Date: 20140530
  Receipt Date: 20140530
  Transmission Date: 20141212
  Serious: No
  Sender: FDA-Public Use
  Company Number: US-GILEAD-2014-0103676

PATIENT
  Age: 69 Year
  Sex: Female

DRUGS (3)
  1. LETAIRIS [Suspect]
     Indication: PULMONARY HYPERTENSION
     Dates: start: 20120506
  2. SERTRALINE [Suspect]
     Dates: start: 20140513
  3. RIOCIGUAT [Concomitant]
     Dates: start: 20140503

REACTIONS (1)
  - Palpitations [Not Recovered/Not Resolved]
